FAERS Safety Report 6408911-2 (Version None)
Quarter: 2009Q4

REPORT INFORMATION
  Report Type: 
  Country: None (occurrence: None)
  Receive Date: 20091021
  Receipt Date: 20091019
  Transmission Date: 20100525
  Serious: Yes (Hospitalization)
  Sender: FDA-Public Use
  Company Number: US-BRISTOL-MYERS SQUIBB COMPANY-14808380

PATIENT
  Age: 72 Year
  Sex: Male
  Weight: 66 kg

DRUGS (11)
  1. PACLITAXEL [Suspect]
     Indication: NON-SMALL CELL LUNG CANCER
     Route: 042
     Dates: start: 20090918
  2. CARBOPLATIN [Suspect]
     Indication: NON-SMALL CELL LUNG CANCER
     Dosage: CYCLIC
     Route: 042
     Dates: start: 20090918
  3. NEXIUM [Concomitant]
     Dates: start: 20090825
  4. CONCOR [Concomitant]
     Dates: start: 20081101
  5. SIMVAHEXAL [Concomitant]
     Dates: start: 20020101
  6. MORPHINE SULFATE [Concomitant]
     Dates: start: 20090825
  7. FORTECORTIN [Concomitant]
     Indication: PREMEDICATION
     Dates: start: 20090918, end: 20090918
  8. SODIUM CHLORIDE [Concomitant]
     Indication: PREMEDICATION
     Dates: start: 20090918, end: 20090918
  9. CLEMASTINE FUMARATE [Concomitant]
     Indication: PREMEDICATION
     Dates: start: 20090918, end: 20090918
  10. RANITIDINE [Concomitant]
     Indication: PREMEDICATION
     Dates: start: 20090918, end: 20090918
  11. KEVATRIL [Concomitant]
     Indication: PREMEDICATION
     Dates: start: 20090918, end: 20090918

REACTIONS (1)
  - PYREXIA [None]
